FAERS Safety Report 4334301-2 (Version None)
Quarter: 2004Q2

REPORT INFORMATION
  Report Type: 
  Country: None (occurrence: None)
  Receive Date: 20040405
  Receipt Date: 20040322
  Transmission Date: 20050107
  Serious: Yes (Hospitalization)
  Sender: FDA-Public Use
  Company Number: 04P-056-0254423-00

PATIENT
  Age: 76 Year
  Sex: Male
  Weight: 91 kg

DRUGS (6)
  1. DEPAKINE CHRONO TABLETS (SODIUM VALPROATE) [Suspect]
     Indication: EPILEPSY
     Dosage: 500 MG, PER ORAL
     Route: 048
  2. METOPROLOL TARTRATE [Suspect]
     Indication: ANGINA PECTORIS
     Dosage: PER ORAL
     Route: 048
  3. ACARBOSE [Suspect]
     Indication: DIABETES MELLITUS
     Dosage: PER ORAL
     Route: 048
  4. ASPIRIN [Concomitant]
  5. FUROSEMIDE [Concomitant]
  6. POTASSIUM CHLORIDE [Concomitant]

REACTIONS (6)
  - ECZEMA [None]
  - ERYTHEMA MULTIFORME [None]
  - GENERAL PHYSICAL HEALTH DETERIORATION [None]
  - HEPATIC NEOPLASM [None]
  - OEDEMA PERIPHERAL [None]
  - SKIN ATROPHY [None]
